FAERS Safety Report 25591442 (Version 1)
Quarter: 2025Q3

REPORT INFORMATION
  Report Type: Spontaneous
  Country: EU (occurrence: EU)
  Receive Date: 20250722
  Receipt Date: 20250722
  Transmission Date: 20251021
  Serious: Yes (Life-Threatening, Hospitalization)
  Sender: TEVA
  Company Number: None

PATIENT
  Age: 73 Year
  Sex: Female

DRUGS (4)
  1. OXALIPLATIN [Suspect]
     Active Substance: OXALIPLATIN
     Indication: Adenocarcinoma of colon
     Dosage: 85 MG/M2 EVERY 14 DAYS, OXALIPLATINO (7351A)
     Route: 042
     Dates: start: 20250402, end: 20250526
  2. FOLINATO CALCIO [Concomitant]
     Indication: Adenocarcinoma of colon
     Route: 042
     Dates: start: 20250402, end: 20250609
  3. MVASI [Suspect]
     Active Substance: BEVACIZUMAB-AWWB
     Indication: Adenocarcinoma of colon
     Dosage: 5MG/KG EVERY 14 DAYS; 1 VIAL OF 16 ML,
     Route: 042
     Dates: start: 20250402, end: 20250609
  4. FLUOROURACIL [Suspect]
     Active Substance: FLUOROURACIL
     Indication: Adenocarcinoma of colon
     Dosage: 2400MG/M2 EVERY 14 DAYS, FLUOROURACILO (272A)
     Route: 042
     Dates: start: 20250402, end: 20250526

REACTIONS (1)
  - Agranulocytosis [Recovered/Resolved]

NARRATIVE: CASE EVENT DATE: 20250609
